FAERS Safety Report 8330437-X (Version None)
Quarter: 2012Q2

REPORT INFORMATION
  Report Type: 
  Country: None (occurrence: None)
  Receive Date: 20120502
  Receipt Date: 20120426
  Transmission Date: 20120825
  Serious: Yes (Hospitalization, Other)
  Sender: FDA-Public Use
  Company Number: JP-B.I. PHARMACEUTICALS,INC./RIDGEFIELD-2012-BP-07090NB

PATIENT
  Sex: Male

DRUGS (9)
  1. SOLDEM 3A [Concomitant]
     Indication: ELECTROLYTE SUBSTITUTION THERAPY
     Dosage: 1000 ML
     Route: 042
     Dates: start: 20120310, end: 20120316
  2. DIAINAMIX [Concomitant]
     Indication: VITAMIN SUPPLEMENTATION
     Dosage: 10 ML
     Route: 042
     Dates: start: 20120310, end: 20120312
  3. FAMOTIDINE [Concomitant]
     Indication: GASTRITIS PROPHYLAXIS
     Dosage: 40 ML
     Route: 042
     Dates: start: 20120310, end: 20120312
  4. PRADAXA [Suspect]
     Indication: ATRIAL FIBRILLATION
     Dosage: 300 MG
     Route: 048
     Dates: end: 20120328
  5. LACTEC [Concomitant]
     Indication: FLUID REPLACEMENT
     Dosage: 500 ML
     Route: 042
     Dates: start: 20120309, end: 20120309
  6. SOLACET F [Concomitant]
     Indication: FLUID REPLACEMENT
     Dosage: 1000 ML
     Route: 042
     Dates: start: 20120310, end: 20120312
  7. LANSOPRAZOLE [Concomitant]
     Indication: GASTRITIS PROPHYLAXIS
     Dosage: 15 MG
     Route: 048
     Dates: start: 20120313
  8. OLMESARTAN MEDOXOMIL [Concomitant]
     Indication: HYPERTENSION
     Dosage: 20 MG
     Route: 048
     Dates: start: 20120329
  9. RADICUT [Concomitant]
     Indication: CEREBRAL INFARCTION
     Dosage: 60 MG
     Route: 042
     Dates: start: 20120309, end: 20120316

REACTIONS (2)
  - CEREBRAL INFARCTION [None]
  - HAEMORRHAGIC INFARCTION [None]
